FAERS Safety Report 17426543 (Version 3)
Quarter: 2020Q1

REPORT INFORMATION
  Report Type: Report from Study
  Country: CO (occurrence: CO)
  Receive Date: 20200218
  Receipt Date: 20200320
  Transmission Date: 20200409
  Serious: Yes (Hospitalization, Other)
  Sender: FDA-Public Use
  Company Number: CO-ASTELLAS-2020US005860

PATIENT
  Age: 42 Year
  Sex: Female

DRUGS (4)
  1. TACROLIMUS. [Suspect]
     Active Substance: TACROLIMUS
     Dosage: 3 MG, ONCE DAILY (3 CAPSULE OF 1MG)
     Route: 048
     Dates: start: 20200130, end: 202002
  2. TACROLIMUS. [Suspect]
     Active Substance: TACROLIMUS
     Route: 048
     Dates: start: 20200311
  3. TACROLIMUS. [Suspect]
     Active Substance: TACROLIMUS
     Indication: RENAL TRANSPLANT
     Dosage: 7 MG, ONCE DAILY (1 CAPSULE OF 5MG AND 2 CAPSULE OF 1MG)
     Route: 048
     Dates: start: 20200103, end: 20200129
  4. TACROLIMUS. [Suspect]
     Active Substance: TACROLIMUS
     Route: 048

REACTIONS (7)
  - Vomiting [Unknown]
  - Blood creatinine increased [Recovered/Resolved]
  - Haemoglobin decreased [Recovering/Resolving]
  - Diarrhoea [Unknown]
  - Urinary tract infection [Unknown]
  - Nausea [Unknown]
  - Toxicity to various agents [Not Recovered/Not Resolved]

NARRATIVE: CASE EVENT DATE: 202001
